FAERS Safety Report 15825734 (Version 7)
Quarter: 2019Q4

REPORT INFORMATION
  Report Type: Spontaneous
  Country: JP (occurrence: JP)
  Receive Date: 20190115
  Receipt Date: 20191220
  Transmission Date: 20200122
  Serious: Yes (Life-Threatening, Hospitalization, Other)
  Sender: FDA-Public Use
  Company Number: JP-BRISTOL-MYERS SQUIBB COMPANY-BMS-2018-109206

PATIENT
  Age: 56 Year
  Sex: Male
  Weight: 63.9 kg

DRUGS (4)
  1. YERVOY [Suspect]
     Active Substance: IPILIMUMAB
     Indication: METASTATIC RENAL CELL CARCINOMA
     Dosage: 74.3 MILLIGRAM, Q3WK
     Route: 041
     Dates: start: 20180929, end: 20181203
  2. VOTRIENT [Suspect]
     Active Substance: PAZOPANIB HYDROCHLORIDE
     Indication: METASTATIC RENAL CELL CARCINOMA
     Dosage: 400 MILLIGRAM, QD
     Route: 048
     Dates: start: 20181226, end: 20190107
  3. AMLODIPINE (ALS BESILAAT) SANDOZ [Concomitant]
     Indication: HYPERTENSION
     Dosage: 10 MILLIGRAM, QD
     Route: 048
  4. OPDIVO [Suspect]
     Active Substance: NIVOLUMAB
     Indication: METASTATIC RENAL CELL CARCINOMA
     Dosage: 240 MG, UNK
     Route: 041
     Dates: start: 20180929, end: 20181203

REACTIONS (11)
  - Anaemia [Recovered/Resolved]
  - Oral candidiasis [Unknown]
  - Gastrointestinal haemorrhage [Recovered/Resolved]
  - Renal failure [Recovered/Resolved]
  - Sepsis [Recovered/Resolved]
  - Hepatic failure [Recovered/Resolved]
  - Malignant neoplasm progression [Unknown]
  - Duodenal ulcer [Unknown]
  - Infection [Not Recovered/Not Resolved]
  - Kaposi^s varicelliform eruption [Unknown]
  - Silent thyroiditis [Not Recovered/Not Resolved]

NARRATIVE: CASE EVENT DATE: 20181112
